FAERS Safety Report 6423972-2 (Version None)
Quarter: 2009Q4

REPORT INFORMATION
  Report Type: 
  Country: None (occurrence: None)
  Receive Date: 20091102
  Receipt Date: 20091020
  Transmission Date: 20100525
  Serious: Yes (Other)
  Sender: FDA-Public Use
  Company Number: PHEH2008US08808

PATIENT
  Sex: Female
  Weight: 62.585 kg

DRUGS (13)
  1. AREDIA [Suspect]
  2. ZOMETA [Suspect]
  3. LEVOTHYROXINE SODIUM [Concomitant]
  4. IBUPROFEN [Concomitant]
  5. WELLBUTRIN [Concomitant]
  6. MS CONTIN [Concomitant]
  7. LORTAB [Concomitant]
  8. ETRAFON 2-25 [Concomitant]
  9. ZOFRAN [Concomitant]
     Dosage: UNK, PRN
  10. REGLAN [Concomitant]
     Dosage: UNK, PRN
  11. ELAVIL [Concomitant]
  12. TRILAFON [Concomitant]
  13. ESTROGENS CONJUGATED [Concomitant]
     Dosage: 1.25 MG, UNK

REACTIONS (28)
  - ABSCESS DRAINAGE [None]
  - ANAEMIA [None]
  - ANHEDONIA [None]
  - ANXIETY [None]
  - ARTHRALGIA [None]
  - BACK INJURY [None]
  - BACK PAIN [None]
  - DISABILITY [None]
  - DYSPHAGIA [None]
  - EXOSTOSIS [None]
  - GINGIVAL DISORDER [None]
  - INFECTION [None]
  - INJURY [None]
  - INSOMNIA [None]
  - JAW DISORDER [None]
  - MASTICATION DISORDER [None]
  - MEDICAL DEVICE REMOVAL [None]
  - MENORRHAGIA [None]
  - MUSCULOSKELETAL PAIN [None]
  - NEOPLASM [None]
  - NEURECTOMY [None]
  - NEUROMA [None]
  - OSTEONECROSIS [None]
  - PAIN [None]
  - SALPINGO-OOPHORECTOMY BILATERAL [None]
  - TOOTH REPAIR [None]
  - TUMOUR EXCISION [None]
  - UTERINE LEIOMYOMA [None]
